FAERS Safety Report 9348317 (Version 1)
Quarter: 2013Q2

REPORT INFORMATION
  Report Type: Spontaneous
  Country: US (occurrence: US)
  Receive Date: 20130614
  Receipt Date: 20130614
  Transmission Date: 20140414
  Serious: Yes (Other)
  Sender: FDA-Public Use
  Company Number: US-PFIZER INC-2013175968

PATIENT
  Age: 58 Year
  Sex: Female
  Weight: 74.83 kg

DRUGS (2)
  1. ZOLOFT [Suspect]
     Indication: DEPRESSION
     Dosage: 50MG TABLET ONCE IN NIGHT AND 25MG IN MORNING BY CUTTING 50MG INTO HALF, 2X/DAY
     Route: 048
     Dates: start: 1996
  2. DEPAKOTE [Concomitant]
     Dosage: 500 MG, UNK

REACTIONS (3)
  - Cerebral haemangioma [Unknown]
  - Convulsion [Unknown]
  - Fall [Unknown]
